FAERS Safety Report 6526641-3 (Version None)
Quarter: 2010Q1

REPORT INFORMATION
  Report Type: 
  Country: None (occurrence: None)
  Receive Date: 20100105
  Receipt Date: 20091228
  Transmission Date: 20100710
  Serious: Yes (Death)
  Sender: FDA-Public Use
  Company Number: US-ROCHE-673335

PATIENT
  Sex: Female
  Weight: 78 kg

DRUGS (1)
  1. CAPECITABINE [Suspect]
     Route: 048
     Dates: start: 20090908, end: 20091006

REACTIONS (1)
  - MALIGNANT NEOPLASM PROGRESSION [None]
